FAERS Safety Report 6835896-7 (Version None)
Quarter: 2010Q3

REPORT INFORMATION
  Report Type: 
  Country: None (occurrence: None)
  Receive Date: 20100713
  Receipt Date: 20100705
  Transmission Date: 20110219
  Serious: Yes (Other)
  Sender: FDA-Public Use
  Company Number: BR-SANOFI-AVENTIS-2010SA039301

PATIENT
  Sex: Female
  Weight: 94 kg

DRUGS (11)
  1. LANTUS [Suspect]
     Indication: TYPE 2 DIABETES MELLITUS
     Route: 058
     Dates: start: 20091201
  2. LANTUS [Suspect]
     Route: 058
  3. SOLOSTAR [Suspect]
     Dates: start: 20091201
  4. BENICAR [Concomitant]
  5. ASPIRIN [Concomitant]
  6. MONOCORDIL [Concomitant]
  7. MEMANTINE [Concomitant]
  8. ERANZ [Concomitant]
  9. ALL OTHER THERAPEUTIC PRODUCTS [Concomitant]
  10. SIMVASTATIN [Concomitant]
  11. DIPROSPAN [Concomitant]

REACTIONS (1)
  - DEMENTIA ALZHEIMER'S TYPE [None]
